FAERS Safety Report 13665236 (Version 1)
Quarter: 2017Q2

REPORT INFORMATION
  Report Type: Spontaneous
  Country: US (occurrence: US)
  Receive Date: 20170619
  Receipt Date: 20170619
  Transmission Date: 20170830
  Serious: Yes (Life-Threatening, Other)
  Sender: FDA-Public Use
  Company Number: None

PATIENT
  Age: 8 Year
  Sex: Female
  Weight: 27 kg

DRUGS (3)
  1. MULTIVITAMIN [Concomitant]
     Active Substance: VITAMINS
  2. MONTELEUKAST SODIUM 5MG [Suspect]
     Active Substance: MONTELUKAST SODIUM
     Indication: ASTHMA
     Dosage: ?          QUANTITY:1 TABLET(S);?
     Route: 048
  3. MONTELEUKAST SODIUM 5MG [Suspect]
     Active Substance: MONTELUKAST SODIUM
     Indication: MULTIPLE ALLERGIES
     Dosage: ?          QUANTITY:1 TABLET(S);?
     Route: 048

REACTIONS (4)
  - Depression [None]
  - Aggression [None]
  - Suicidal ideation [None]
  - Anger [None]

NARRATIVE: CASE EVENT DATE: 20151201
